FAERS Safety Report 8205174-2 (Version None)
Quarter: 2012Q1

REPORT INFORMATION
  Report Type: 
  Country: None (occurrence: None)
  Receive Date: 20120309
  Receipt Date: 20120301
  Transmission Date: 20120608
  Serious: Yes (Other)
  Sender: FDA-Public Use
  Company Number: 1203-119

PATIENT
  Sex: Male

DRUGS (1)
  1. EYLEA [Suspect]
     Dosage: 0.05 ML, INTRAVITREAL
     Dates: start: 20120222

REACTIONS (1)
  - MYOCARDIAL INFARCTION [None]
